FAERS Safety Report 25479028 (Version 1)
Quarter: 2025Q2

REPORT INFORMATION
  Report Type: Spontaneous
  Country: US (occurrence: None)
  Receive Date: 20250624
  Receipt Date: 20250624
  Transmission Date: 20250717
  Serious: Yes (Disabling)
  Sender: FDA-CTU
  Company Number: None

PATIENT
  Age: 63 Year
  Sex: Male

DRUGS (2)
  1. TAGRISSO [Suspect]
     Active Substance: OSIMERTINIB
  2. TAGRISSO [Concomitant]
     Active Substance: OSIMERTINIB
     Dates: start: 20241201

REACTIONS (3)
  - Blindness [None]
  - Adverse drug reaction [None]
  - Ataxia [None]
